FAERS Safety Report 23790049 (Version 3)
Quarter: 2024Q2

REPORT INFORMATION
  Report Type: Spontaneous
  Country: CA (occurrence: CA)
  Receive Date: 20240426
  Receipt Date: 20240625
  Transmission Date: 20240716
  Serious: No
  Sender: FDA-Public Use
  Company Number: CA-PFIZER INC-202400078870

PATIENT
  Age: 16 Year
  Sex: Male

DRUGS (2)
  1. DEPO-PROVERA [Suspect]
     Active Substance: MEDROXYPROGESTERONE ACETATE
     Indication: Transgender hormonal therapy
     Dosage: 150 MG, SINGLE
     Route: 030
     Dates: start: 20240324, end: 20240324
  2. DEPO-PROVERA [Suspect]
     Active Substance: MEDROXYPROGESTERONE ACETATE
     Dosage: 150 MG, SINGLE
     Route: 030
     Dates: start: 20240328, end: 20240328

REACTIONS (4)
  - Incorrect dose administered by device [Unknown]
  - Device use error [Unknown]
  - Intentional product misuse [Unknown]
  - Prescription form tampering [Unknown]

NARRATIVE: CASE EVENT DATE: 20240324
